FAERS Safety Report 11443687 (Version 1)
Quarter: 2015Q3

REPORT INFORMATION
  Report Type: Spontaneous
  Country: US (occurrence: US)
  Receive Date: 20150901
  Receipt Date: 20150901
  Transmission Date: 20151125
  Serious: Yes (Death)
  Sender: FDA-Public Use
  Company Number: US-SPECTRUM PHARMACEUTICALS, INC.-15-F-US-00371

PATIENT
  Age: 49 Year
  Sex: Female
  Weight: 56.24 kg

DRUGS (4)
  1. CAMPTOSAR [Concomitant]
     Active Substance: IRINOTECAN HYDROCHLORIDE
     Indication: PRODUCT USED FOR UNKNOWN INDICATION
  2. FUSILEV [Suspect]
     Active Substance: LEVOLEUCOVORIN CALCIUM
     Dosage: 260 MG, SINGLE
     Route: 042
     Dates: start: 20141229, end: 20141229
  3. 5-FU                               /00098801/ [Concomitant]
     Active Substance: FLUOROURACIL
     Indication: PRODUCT USED FOR UNKNOWN INDICATION
  4. FUSILEV [Suspect]
     Active Substance: LEVOLEUCOVORIN CALCIUM
     Indication: COLON CANCER
     Dosage: UNK
     Route: 042
     Dates: start: 20141203, end: 20141203

REACTIONS (1)
  - Death [Fatal]

NARRATIVE: CASE EVENT DATE: 20150222
